FAERS Safety Report 5051068-3 (Version None)
Quarter: 2006Q3

REPORT INFORMATION
  Report Type: 
  Country: None (occurrence: None)
  Receive Date: 20060714
  Receipt Date: 20060704
  Transmission Date: 20061208
  Serious: Yes (Hospitalization)
  Sender: FDA-Public Use
  Company Number: PHFR2006GB02150

PATIENT
  Age: 6 Year
  Sex: Female

DRUGS (1)
  1. TEGRETOL [Suspect]
     Dosage: UNK, UNK
     Route: 065
     Dates: start: 20050101

REACTIONS (3)
  - ACCIDENTAL EXPOSURE [None]
  - COMA [None]
  - LOSS OF CONSCIOUSNESS [None]
